FAERS Safety Report 5107058-5 (Version None)
Quarter: 2006Q3

REPORT INFORMATION
  Report Type: 
  Country: None (occurrence: None)
  Receive Date: 20060913
  Receipt Date: 20060905
  Transmission Date: 20061208
  Serious: Yes (Hospitalization, Other)
  Sender: FDA-Public Use
  Company Number: 219780

PATIENT
  Age: 43 Year
  Sex: Male

DRUGS (3)
  1. EFALIZUMAB (EFALIZUMAB)PWDR + SOLVENT, INJECTION SOLN, 125 MG [Suspect]
     Indication: PSORIASIS
     Dosage: 0.142 MG/KG, 1/WEEK, SUBCUTANEOUS
     Route: 058
     Dates: start: 20050518, end: 20051005
  2. CALCIPOTRIOL (CALCIPOTRIENE) [Concomitant]
  3. AQUEOUS CREAM (DERMATOLOGIC AGENT NOS) [Concomitant]

REACTIONS (10)
  - CONDITION AGGRAVATED [None]
  - DERMATITIS [None]
  - HYPERKERATOSIS [None]
  - LYMPHOCYTOSIS [None]
  - PARAKERATOSIS [None]
  - PSORIASIS [None]
  - RASH ERYTHEMATOUS [None]
  - RASH PRURITIC [None]
  - SKIN EROSION [None]
  - SKIN OEDEMA [None]
